FAERS Safety Report 19463924 (Version 2)
Quarter: 2021Q3

REPORT INFORMATION
  Report Type: Spontaneous
  Country: US (occurrence: US)
  Receive Date: 20210625
  Receipt Date: 20210728
  Transmission Date: 20211014
  Serious: No
  Sender: FDA-Public Use
  Company Number: US-SA-2021SA208734

PATIENT
  Age: 30 Year
  Sex: Female

DRUGS (1)
  1. DUPIXENT [Suspect]
     Active Substance: DUPILUMAB
     Indication: DERMATITIS ATOPIC
     Dosage: 300 MG, QOW
     Route: 058
     Dates: start: 20210302

REACTIONS (9)
  - Injection site erythema [Not Recovered/Not Resolved]
  - Injection site irritation [Not Recovered/Not Resolved]
  - Injection site pain [Not Recovered/Not Resolved]
  - Erythema [Not Recovered/Not Resolved]
  - Gallbladder disorder [Unknown]
  - Unevaluable event [Unknown]
  - Condition aggravated [Not Recovered/Not Resolved]
  - Peripheral swelling [Not Recovered/Not Resolved]
  - Skin warm [Not Recovered/Not Resolved]

NARRATIVE: CASE EVENT DATE: 2020
